FAERS Safety Report 14239089 (Version 3)
Quarter: 2019Q3

REPORT INFORMATION
  Report Type: Report from Study
  Country: IT (occurrence: IT)
  Receive Date: 20171130
  Receipt Date: 20190813
  Transmission Date: 20191004
  Serious: Yes (Death, Other)
  Sender: FDA-Public Use
  Company Number: IT-ROCHE-1264727

PATIENT
  Age: 74 Year
  Sex: Male
  Weight: 82 kg

DRUGS (9)
  1. COBIMETINIB. [Suspect]
     Active Substance: COBIMETINIB
     Indication: MALIGNANT MELANOMA
     Dosage: MOST RECENT DOSE:15/MAY/2013
     Route: 048
     Dates: start: 20130420
  2. TARGIN [Concomitant]
     Active Substance: NALOXONE HYDROCHLORIDE\OXYCODONE HYDROCHLORIDE
     Indication: PAIN
     Route: 048
     Dates: start: 20130328, end: 20130511
  3. NICERGOLINA [Concomitant]
     Dosage: INDICATION: CEREBROVASCULARPATIA
     Route: 048
     Dates: start: 2004, end: 20130728
  4. CIPRALEX [Concomitant]
     Active Substance: ESCITALOPRAM OXALATE
     Indication: DEPRESSION
     Route: 048
     Dates: start: 2006, end: 20130728
  5. CLEXANE [Concomitant]
     Active Substance: ENOXAPARIN SODIUM
     Dosage: INDICATION:PROPHYLAXIS FOR INVASIVE PROCEDURE
     Route: 058
     Dates: start: 20130529, end: 20130614
  6. FRONTAL [Concomitant]
     Active Substance: ALPRAZOLAM
     Indication: DEPRESSION
     Route: 048
     Dates: start: 2010, end: 20130728
  7. NOVORAPID [Concomitant]
     Active Substance: INSULIN ASPART
     Indication: DIABETES MELLITUS
     Route: 058
     Dates: start: 2009, end: 20130728
  8. VEMURAFENIB. [Suspect]
     Active Substance: VEMURAFENIB
     Indication: MALIGNANT MELANOMA
     Dosage: RECENT DOSE OF VEMURAFENIB PRIOR TO SAE: 15/MAY/2013, 27/JUL/2013.
     Route: 048
     Dates: start: 20130420
  9. NOVOMIX [Concomitant]
     Active Substance: INSULIN ASPART
     Indication: DIABETES MELLITUS
     Route: 058
     Dates: start: 2009, end: 20130728

REACTIONS (3)
  - Ejection fraction decreased [Not Recovered/Not Resolved]
  - Cardiac arrest [Fatal]
  - Serous retinal detachment [Not Recovered/Not Resolved]

NARRATIVE: CASE EVENT DATE: 20130516
